FAERS Safety Report 7757356-1 (Version None)
Quarter: 2011Q3

REPORT INFORMATION
  Report Type: 
  Country: None (occurrence: None)
  Receive Date: 20110916
  Receipt Date: 20110913
  Transmission Date: 20111222
  Serious: Yes (Hospitalization)
  Sender: FDA-Public Use
  Company Number: JP-EISAI INC-E2090-01731-SPO-JP

PATIENT
  Sex: Male

DRUGS (5)
  1. PRAMIPEXOLE DIHYDROCHLORIDE [Concomitant]
     Indication: PARKINSONISM
     Dosage: 2 MG DAILY
     Route: 048
     Dates: start: 20091207
  2. GASLON N [Concomitant]
     Indication: GASTRIC DISORDER
     Dosage: 4 MG DAILY
     Route: 048
     Dates: start: 20101125
  3. FP-OD [Concomitant]
     Indication: PARKINSONISM
     Dosage: 2.5 MG DAILY
     Route: 048
     Dates: start: 20110217
  4. EC-DOPARL [Concomitant]
     Indication: PARKINSONISM
     Dosage: 300 MG DAILY
     Route: 048
     Dates: start: 20100803
  5. ZONISAMIDE [Suspect]
     Indication: PARKINSONISM
     Route: 048
     Dates: start: 20110804

REACTIONS (1)
  - URINARY RETENTION [None]
